FAERS Safety Report 21402906 (Version 4)
Quarter: 2022Q4

REPORT INFORMATION
  Report Type: Report from Study
  Country: US (occurrence: US)
  Receive Date: 20221003
  Receipt Date: 20221114
  Transmission Date: 20230112
  Serious: No
  Sender: FDA-Public Use
  Company Number: US-NOVARTISTESTPH-NVSC2022US221168

PATIENT
  Sex: Female

DRUGS (7)
  1. ENTRESTO [Suspect]
     Active Substance: SACUBITRIL\VALSARTAN
     Indication: Product used for unknown indication
     Dosage: 1 DOSAGE FORM, BID
     Route: 048
     Dates: start: 20220821
  2. CARVEDILOL [Suspect]
     Active Substance: CARVEDILOL
     Indication: Product used for unknown indication
     Dosage: 25 MG, BID
     Route: 065
  3. CARVEDILOL [Suspect]
     Active Substance: CARVEDILOL
     Dosage: 12.5 MG, BID
     Route: 065
  4. CARVEDILOL [Suspect]
     Active Substance: CARVEDILOL
     Route: 065
  5. FUROSEMIDE [Suspect]
     Active Substance: FUROSEMIDE
     Indication: Product used for unknown indication
     Dosage: UNK
     Route: 065
  6. SPIRONOLACTONE [Suspect]
     Active Substance: SPIRONOLACTONE
     Indication: Product used for unknown indication
     Dosage: UNK
     Route: 065
  7. MAGNESIUM [Suspect]
     Active Substance: MAGNESIUM
     Indication: Blood magnesium decreased
     Dosage: UNK
     Route: 065

REACTIONS (14)
  - Weight decreased [Unknown]
  - Therapeutic response unexpected [Unknown]
  - Anxiety [Unknown]
  - Nasopharyngitis [Unknown]
  - Cough [Unknown]
  - Nasal congestion [Unknown]
  - Peripheral swelling [Unknown]
  - Blood glucose increased [Unknown]
  - Weight fluctuation [Unknown]
  - Overweight [Unknown]
  - Gastrointestinal pain [Unknown]
  - Dry mouth [Unknown]
  - Dizziness [Unknown]
  - Hypotension [Unknown]
